FAERS Safety Report 25401496 (Version 2)
Quarter: 2025Q2

REPORT INFORMATION
  Report Type: Spontaneous
  Country: GB (occurrence: GB)
  Receive Date: 20250605
  Receipt Date: 20250618
  Transmission Date: 20250717
  Serious: Yes (Other)
  Sender: GALPHARM INTERNATIONAL
  Company Number: None

PATIENT
  Age: 55 Year
  Sex: Female

DRUGS (3)
  1. IBUPROFEN [Suspect]
     Active Substance: IBUPROFEN
     Indication: Product used for unknown indication
     Route: 065
     Dates: start: 2015
  2. AVONEX [Suspect]
     Active Substance: INTERFERON BETA-1A
     Indication: Multiple sclerosis
     Dosage: 30 ?G, OW, 1 PER 1 WEEK;, DOSE FORM: SOLUTION FOR INJECTION IN PRE-FILLED SYRINGE KIT
     Route: 030
     Dates: start: 2015
  3. ASPIRIN [Suspect]
     Active Substance: ASPIRIN
     Indication: Product used for unknown indication
     Route: 065
     Dates: start: 2015

REACTIONS (3)
  - Anaphylactic reaction [Unknown]
  - Influenza like illness [Unknown]
  - Drug hypersensitivity [Unknown]
